FAERS Safety Report 4283630-X (Version None)
Quarter: 2004Q1

REPORT INFORMATION
  Report Type: 
  Country: None (occurrence: None)
  Receive Date: 20040129
  Receipt Date: 20040129
  Transmission Date: 20041129
  Serious: No
  Sender: FDA-Public Use
  Company Number: None

PATIENT
  Age: 61 Year
  Sex: Female
  Weight: 119.8 kg

DRUGS (3)
  1. AUGMENTIN [Suspect]
     Indication: PHARYNGOLARYNGEAL PAIN
  2. HYDROCHLOROTHIAZIDE [Suspect]
     Indication: HYPERTENSION
     Dosage: 25 MG PO QD
     Route: 048
  3. ATENOLOL [Concomitant]

REACTIONS (9)
  - CHAPPED LIPS [None]
  - ERYTHEMA [None]
  - EYE REDNESS [None]
  - GENITAL PRURITUS FEMALE [None]
  - HYPOKALAEMIA [None]
  - LIP SLOUGHING [None]
  - ODYNOPHAGIA [None]
  - RASH [None]
  - SWELLING FACE [None]
